FAERS Safety Report 5309841-X (Version None)
Quarter: 2007Q2

REPORT INFORMATION
  Report Type: 
  Country: None (occurrence: None)
  Receive Date: 20070427
  Receipt Date: 20070417
  Transmission Date: 20071010
  Serious: Yes (Hospitalization, Other)
  Sender: FDA-Public Use
  Company Number: US-AMGEN-US214210

PATIENT
  Sex: Female
  Weight: 59.6 kg

DRUGS (13)
  1. PROCRIT [Suspect]
     Indication: MYELODYSPLASTIC SYNDROME
     Route: 065
     Dates: start: 20050501, end: 20070101
  2. ARANESP [Suspect]
     Indication: MYELODYSPLASTIC SYNDROME
     Route: 065
     Dates: start: 20070201, end: 20070401
  3. PREDNISONE TAB [Concomitant]
     Dates: start: 20070217
  4. CYTOXAN [Concomitant]
     Dates: start: 20070217
  5. OMEPRAZOLE [Concomitant]
  6. DETROL [Concomitant]
  7. CLARINEX [Concomitant]
  8. VIDAZA [Concomitant]
     Dates: start: 20060701
  9. NASONEX [Concomitant]
  10. CALCIUM CHLORIDE [Concomitant]
  11. VITAMIN CAP [Concomitant]
  12. BONIVA [Concomitant]
  13. LUNESTA [Concomitant]

REACTIONS (4)
  - ANTI-ERYTHROPOIETIN ANTIBODY POSITIVE [None]
  - APLASIA PURE RED CELL [None]
  - MYCOBACTERIUM AVIUM COMPLEX INFECTION [None]
  - URINARY TRACT INFECTION [None]
